FAERS Safety Report 6546534-5 (Version None)
Quarter: 2010Q1

REPORT INFORMATION
  Report Type: 
  Country: None (occurrence: None)
  Receive Date: 20100122
  Receipt Date: 20100112
  Transmission Date: 20100710
  Serious: Yes (Life-Threatening, Hospitalization)
  Sender: FDA-Public Use
  Company Number: PL-SANOFI-AVENTIS-2009SA011419

PATIENT
  Age: 49 Year
  Sex: Male
  Weight: 62 kg

DRUGS (10)
  1. ZOLPIDEM TARTRATE [Suspect]
     Indication: DRUG USE FOR UNKNOWN INDICATION
  2. FENTANYL [Suspect]
     Indication: PAIN
  3. FENTANYL [Suspect]
     Indication: MULTIPLE DRUG OVERDOSE INTENTIONAL
  4. FENTANYL [Suspect]
     Dates: start: 20091117
  5. FENTANYL [Suspect]
     Dates: start: 20091117
  6. ALPRAZOLAM [Suspect]
     Indication: DRUG USE FOR UNKNOWN INDICATION
  7. ALPRAZOLAM [Suspect]
     Indication: MULTIPLE DRUG OVERDOSE INTENTIONAL
  8. ALPRAZOLAM [Suspect]
     Dates: start: 20091117
  9. ALPRAZOLAM [Suspect]
     Dates: start: 20091117
  10. INVESTIGATIONAL DRUG [Concomitant]
     Route: 042
     Dates: start: 20090825

REACTIONS (2)
  - COMA [None]
  - RESPIRATORY FAILURE [None]
